FAERS Safety Report 6035037-2 (Version None)
Quarter: 2009Q1

REPORT INFORMATION
  Report Type: 
  Country: None (occurrence: None)
  Receive Date: 20090112
  Receipt Date: 20080114
  Transmission Date: 20090719
  Serious: No
  Sender: FDA-Public Use
  Company Number: US-ABBOTT-08P-163-0433616-00

PATIENT
  Sex: Male

DRUGS (2)
  1. NIMBEX 10MG/ML INJECTION, 20 ML S-D VIAL [Suspect]
     Indication: ANAESTHESIA
     Route: 042
     Dates: start: 20080114, end: 20080114
  2. VECURONIUM BROMIDE [Concomitant]
     Indication: ANAESTHESIA
     Route: 042
     Dates: start: 20080114, end: 20080114

REACTIONS (1)
  - DRUG INEFFECTIVE [None]
